FAERS Safety Report 25814218 (Version 1)
Quarter: 2025Q3

REPORT INFORMATION
  Report Type: Spontaneous
  Country: US (occurrence: US)
  Receive Date: 20250917
  Receipt Date: 20250917
  Transmission Date: 20251020
  Serious: No
  Sender: ABBVIE
  Company Number: US-ABBVIE-6464590

PATIENT
  Sex: Male

DRUGS (1)
  1. HUMIRA [Suspect]
     Active Substance: ADALIMUMAB
     Indication: Psoriatic arthropathy
     Route: 058

REACTIONS (6)
  - Muscle spasms [Unknown]
  - Pain in extremity [Unknown]
  - Injection site irritation [Unknown]
  - Injection site haemorrhage [Unknown]
  - Device issue [Not Recovered/Not Resolved]
  - Arthralgia [Unknown]
